FAERS Safety Report 26001491 (Version 4)
Quarter: 2025Q4

REPORT INFORMATION
  Report Type: Spontaneous
  Country: US (occurrence: US)
  Receive Date: 20251105
  Receipt Date: 20251221
  Transmission Date: 20260117
  Serious: Yes (Death)
  Sender: BIOGEN
  Company Number: US-BIOGEN-2088948

PATIENT
  Age: 51 Year
  Sex: Male

DRUGS (3)
  1. TYSABRI [Suspect]
     Active Substance: NATALIZUMAB
     Indication: Multiple sclerosis
     Dates: start: 20160330, end: 20190723
  2. TYSABRI [Suspect]
     Active Substance: NATALIZUMAB
     Dates: start: 20190930, end: 20250913
  3. TYSABRI [Suspect]
     Active Substance: NATALIZUMAB
     Dates: start: 20160317, end: 20190723

REACTIONS (1)
  - Completed suicide [Fatal]

NARRATIVE: CASE EVENT DATE: 20251011
